FAERS Safety Report 12596246 (Version 1)
Quarter: 2016Q3

REPORT INFORMATION
  Report Type: Report from Study
  Country: US (occurrence: US)
  Receive Date: 20160726
  Receipt Date: 20160726
  Transmission Date: 20161109
  Serious: No
  Sender: FDA-Public Use
  Company Number: US-AMGEN-USASL2016049520

PATIENT
  Age: 59 Year
  Sex: Male

DRUGS (1)
  1. KYPROLIS [Suspect]
     Active Substance: CARFILZOMIB
     Indication: PRODUCT USED FOR UNKNOWN INDICATION
     Dosage: UNK
     Route: 065
     Dates: end: 20160415

REACTIONS (6)
  - Diarrhoea [Unknown]
  - Hospice care [Unknown]
  - Skin ulcer [Unknown]
  - Pain [Unknown]
  - Blood potassium decreased [Unknown]
  - Weight increased [Unknown]

NARRATIVE: CASE EVENT DATE: 2016
